FAERS Safety Report 5752635-1 (Version None)
Quarter: 2008Q2

REPORT INFORMATION
  Report Type: 
  Country: None (occurrence: None)
  Receive Date: 20080527
  Receipt Date: 20080527
  Transmission Date: 20081010
  Serious: Yes (Life-Threatening, Hospitalization)
  Sender: FDA-Public Use
  Company Number: None

PATIENT
  Age: 63 Year
  Sex: Male
  Weight: 108.8633 kg

DRUGS (9)
  1. TARCEVA [Suspect]
     Indication: NON-SMALL CELL LUNG CANCER RECURRENT
     Dosage: 150 MG DAILY PO
     Route: 048
     Dates: start: 20080408, end: 20080515
  2. SOTALAL [Concomitant]
  3. ACEON [Concomitant]
  4. HYDROCHLOROTHIAZIDE [Concomitant]
  5. LASIX [Concomitant]
  6. PLAVIX [Concomitant]
  7. ASPIRIN [Concomitant]
  8. SIMVASTATIN [Concomitant]
  9. IMODIUM [Concomitant]

REACTIONS (7)
  - BLOOD PRESSURE DECREASED [None]
  - DIARRHOEA [None]
  - DYSPNOEA [None]
  - HYPERCALCAEMIA [None]
  - HYPERKALAEMIA [None]
  - PAIN [None]
  - RENAL FUNCTION TEST ABNORMAL [None]
